FAERS Safety Report 8431508-X (Version None)
Quarter: 2012Q2

REPORT INFORMATION
  Report Type: 
  Country: None (occurrence: None)
  Receive Date: 20120604
  Receipt Date: 20120517
  Transmission Date: 20120825
  Serious: Yes (Hospitalization)
  Sender: FDA-Public Use
  Company Number: SP05065

PATIENT
  Age: 58 Year
  Sex: Female
  Weight: 76.7 kg

DRUGS (11)
  1. RELISTOR [Suspect]
     Indication: CONSTIPATION
     Dosage: 12 MG (12 MG, 1 IN 1 D), SUBCUTANEOUS
     Route: 058
     Dates: start: 20090715, end: 20090721
  2. AVINZA [Concomitant]
  3. VALPROATE SODIUM [Concomitant]
  4. PAROXETINE [Concomitant]
  5. LISINOPRIL [Concomitant]
  6. PRAVASTATIN [Concomitant]
  7. ARTHROTEC [Concomitant]
  8. MORPHINE SULFATE [Concomitant]
  9. CYCLOBENZAPRINE [Concomitant]
  10. PROPRANOLOL [Concomitant]
  11. ZOPIDEM [Concomitant]

REACTIONS (12)
  - MENTAL STATUS CHANGES [None]
  - BLOOD THYROID STIMULATING HORMONE DECREASED [None]
  - SLUGGISHNESS [None]
  - DEPRESSED LEVEL OF CONSCIOUSNESS [None]
  - ADRENAL INSUFFICIENCY [None]
  - SHOCK [None]
  - SEDATION [None]
  - SOMNOLENCE [None]
  - AGITATION [None]
  - RENAL FAILURE ACUTE [None]
  - HYPOTENSION [None]
  - CONFUSIONAL STATE [None]
